FAERS Safety Report 25342467 (Version 2)
Quarter: 2025Q3

REPORT INFORMATION
  Report Type: Spontaneous
  Country: US (occurrence: US)
  Receive Date: 20250521
  Receipt Date: 20250820
  Transmission Date: 20251020
  Serious: No
  Sender: CATALYST PHARMA
  Company Number: US-CATALYST PHARMACEUTICALS-US-CATA-25-00298

PATIENT
  Sex: Male
  Weight: 34.467 kg

DRUGS (11)
  1. AGAMREE [Suspect]
     Active Substance: VAMOROLONE
     Indication: Duchenne muscular dystrophy
     Dosage: 6.2 ML ONCE DAILY
     Route: 048
     Dates: start: 20241008
  2. AGAMREE [Suspect]
     Active Substance: VAMOROLONE
     Dosage: 3 ML DAILY
     Route: 048
  3. CLONIDINE [Concomitant]
     Active Substance: CLONIDINE
     Indication: Affective disorder
     Route: 065
  4. FAMOTIDINE [Concomitant]
     Active Substance: FAMOTIDINE
     Indication: Gastrointestinal disorder prophylaxis
     Dosage: 10 MG DAILY
     Route: 065
  5. IMMUNE SUPPORT [Concomitant]
     Indication: Immune disorder prophylaxis
     Dosage: DAILY
     Route: 065
  6. AZITHROMYCIN [Concomitant]
     Active Substance: AZITHROMYCIN
     Indication: Ear infection
     Route: 065
  7. DOXYLAMINE [Concomitant]
     Active Substance: DOXYLAMINE
     Indication: Cough
     Route: 065
  8. DOXYLAMINE [Concomitant]
     Active Substance: DOXYLAMINE
     Indication: Ear infection
  9. PHENYLEPHRINE [Concomitant]
     Active Substance: PHENYLEPHRINE
     Indication: Cough
     Route: 065
  10. PHENYLEPHRINE [Concomitant]
     Active Substance: PHENYLEPHRINE
     Indication: Ear infection
  11. CEFDINIR [Concomitant]
     Active Substance: CEFDINIR
     Indication: Ear infection
     Dosage: 5 ML TWICE DAILY
     Route: 048

REACTIONS (1)
  - Weight decreased [Recovered/Resolved]

NARRATIVE: CASE EVENT DATE: 20250101
